FAERS Safety Report 15318701 (Version 1)
Quarter: 2018Q3

REPORT INFORMATION
  Report Type: Spontaneous
  Country: US (occurrence: US)
  Receive Date: 20180817
  Receipt Date: 20180817
  Transmission Date: 20181010
  Serious: Yes (Disabling, Other)
  Sender: FDA-Public Use
  Company Number: None

PATIENT
  Age: 74 Year
  Sex: Female
  Weight: 51.17 kg

DRUGS (19)
  1. ALPHA LIPOIC ACID [Concomitant]
     Active Substance: .ALPHA.-LIPOIC ACID
  2. BIOTIN [Concomitant]
     Active Substance: BIOTIN
  3. CHONDROITIN [Concomitant]
     Active Substance: CHONDROITIN
  4. CHROMIUM [Concomitant]
     Active Substance: CHROMIC CHLORIDE\CHROMIUM
  5. GLIMEPIRIDE. [Concomitant]
     Active Substance: GLIMEPIRIDE
  6. CALCIUM [Concomitant]
     Active Substance: CALCIUM
  7. GLUCOSAMINE [Concomitant]
     Active Substance: GLUCOSAMINE
  8. LOSARTAN. [Concomitant]
     Active Substance: LOSARTAN
  9. LIPOPOLYSACCHARIDE (LPS) [Concomitant]
  10. VITAMIN B12 [Concomitant]
     Active Substance: CYANOCOBALAMIN
  11. COLLAGEN [Concomitant]
     Active Substance: COLLAGEN
  12. OLMESARTAN/HCTZ 40?25MG TAB [Suspect]
     Active Substance: HYDROCHLOROTHIAZIDE\OLMESARTAN MEDOXOMIL
     Indication: HYPERTENSION
     Dosage: ?          QUANTITY:1 DF DOSAGE FORM;?
     Route: 048
     Dates: start: 20180718, end: 20180725
  13. ATENOLOL. [Concomitant]
     Active Substance: ATENOLOL
  14. WOMEN^S MULTIVITAMIN [Concomitant]
  15. OLMESARTAN/HCTZ 40?25MG TAB [Suspect]
     Active Substance: HYDROCHLOROTHIAZIDE\OLMESARTAN MEDOXOMIL
     Indication: BLOOD GLUCOSE INCREASED
     Dosage: ?          QUANTITY:1 DF DOSAGE FORM;?
     Route: 048
     Dates: start: 20180718, end: 20180725
  16. MINOXIDIL. [Concomitant]
     Active Substance: MINOXIDIL
  17. METFORMIN [Concomitant]
     Active Substance: METFORMIN HYDROCHLORIDE
  18. OMEGA 3 [Concomitant]
     Active Substance: OMEGA-3 FATTY ACIDS
  19. MAGNESIUM COMPLEX [Concomitant]

REACTIONS (10)
  - Oropharyngeal pain [None]
  - Hypersensitivity [None]
  - Pruritus [None]
  - Abdominal discomfort [None]
  - Sleep disorder [None]
  - Diarrhoea [None]
  - Myalgia [None]
  - Erythema [None]
  - Blood glucose abnormal [None]
  - Arthralgia [None]

NARRATIVE: CASE EVENT DATE: 20180719
